FAERS Safety Report 24905070 (Version 1)
Quarter: 2025Q1

REPORT INFORMATION
  Report Type: Spontaneous
  Country: ES (occurrence: ES)
  Receive Date: 20250130
  Receipt Date: 20250130
  Transmission Date: 20250409
  Serious: Yes (Other)
  Sender: RHYTHM PHARMACEUTICALS, INC.
  Company Number: ES-Rhythm Pharmaceuticals, Inc.-2025RHM000036

PATIENT
  Age: 8 Year
  Sex: Male

DRUGS (1)
  1. IMCIVREE [Suspect]
     Active Substance: SETMELANOTIDE
     Indication: Product used for unknown indication
     Route: 065
     Dates: start: 20241122, end: 20250110

REACTIONS (4)
  - Urinary retention [Unknown]
  - Abdominal discomfort [Unknown]
  - Fatigue [Unknown]
  - Pigmentation disorder [Unknown]
